FAERS Safety Report 9294263 (Version 1)
Quarter: 2013Q2

REPORT INFORMATION
  Report Type: Spontaneous
  Country: US (occurrence: US)
  Receive Date: 20130516
  Receipt Date: 20130516
  Transmission Date: 20140414
  Serious: No
  Sender: FDA-Public Use
  Company Number: US-009507513-1305USA005394

PATIENT
  Age: 40 Year
  Sex: Female

DRUGS (17)
  1. MIRALAX [Suspect]
     Indication: FAECES HARD
     Dosage: UNK, UNKNOWN
     Route: 048
     Dates: start: 201303
  2. COLACE [Suspect]
     Indication: FAECES HARD
     Dosage: UNK, UNKNOWN
     Dates: start: 201303
  3. FIBER (UNSPECIFIED) [Suspect]
     Indication: FAECES HARD
     Dosage: UNK, UNKNOWN
  4. MINERAL OIL [Suspect]
     Indication: FAECES HARD
     Dosage: UNK, UNKNOWN
  5. SEROQUEL [Concomitant]
     Indication: INSOMNIA
     Dosage: 100 MG, QAM
  6. SEROQUEL [Concomitant]
     Indication: ANXIETY
     Dosage: 300 MG, HS
  7. XANAX [Concomitant]
     Indication: PRODUCT USED FOR UNKNOWN INDICATION
     Dosage: 10 MG, QD
  8. LORAZEPAM [Concomitant]
     Indication: PRODUCT USED FOR UNKNOWN INDICATION
     Dosage: UNK
  9. TRAZODONE HYDROCHLORIDE [Concomitant]
     Indication: INSOMNIA
     Dosage: 300 MG, QD
  10. AMBIEN [Concomitant]
     Indication: INSOMNIA
     Dosage: UNK, UNKNOWN
  11. OXYCODONE [Concomitant]
     Indication: INTERVERTEBRAL DISC PROTRUSION
     Dosage: UNK, UNKNOWN
  12. OXYCODONE [Concomitant]
     Indication: SPINAL OSTEOARTHRITIS
  13. SOMA [Concomitant]
     Indication: PRODUCT USED FOR UNKNOWN INDICATION
     Dosage: UNK, UNKNOWN
  14. EFEXOR [Concomitant]
     Indication: DEPRESSION
     Dosage: UNK, QAM
  15. VITAMIN D (UNSPECIFIED) [Concomitant]
     Indication: PRODUCT USED FOR UNKNOWN INDICATION
     Dosage: UNK, UNKNOWN
  16. VITAMIN B12 [Concomitant]
     Indication: PRODUCT USED FOR UNKNOWN INDICATION
     Dosage: UNK, UNKNOWN
  17. BIOTIN [Concomitant]
     Indication: PRODUCT USED FOR UNKNOWN INDICATION
     Dosage: UNK, UNKNOWN

REACTIONS (1)
  - Abdominal distension [Not Recovered/Not Resolved]
